FAERS Safety Report 16032124 (Version 1)
Quarter: 2019Q1

REPORT INFORMATION
  Report Type: Spontaneous
  Country: FR (occurrence: FR)
  Receive Date: 20190304
  Receipt Date: 20190304
  Transmission Date: 20190418
  Serious: Yes (Other)
  Sender: FDA-Public Use
  Company Number: FR-009507513-1809FRA004258

PATIENT
  Age: 34 Year
  Sex: Female
  Weight: 65 kg

DRUGS (1)
  1. CELESTENE CHRONODOSE [Suspect]
     Active Substance: BETAMETHASONE
     Indication: SCIATICA
     Dosage: INJECTABLE SOLUTION IM
     Route: 030

REACTIONS (5)
  - Exposure during pregnancy [Recovered/Resolved]
  - Off label use [Unknown]
  - Toxoplasma serology positive [Unknown]
  - Caesarean section [Unknown]
  - Intervertebral disc protrusion [Unknown]

NARRATIVE: CASE EVENT DATE: 2018
